FAERS Safety Report 5959423-1 (Version None)
Quarter: 2008Q4

REPORT INFORMATION
  Report Type: 
  Country: None (occurrence: None)
  Receive Date: 20081120
  Receipt Date: 20080923
  Transmission Date: 20090506
  Serious: No
  Sender: FDA-Public Use
  Company Number: A0748690A

PATIENT
  Age: 55 Year
  Sex: Female

DRUGS (4)
  1. VERAMYST [Suspect]
     Dosage: 4SPR PER DAY
     Route: 045
     Dates: start: 20080814
  2. MULTI-VITAMIN [Concomitant]
  3. ASPIRIN [Concomitant]
  4. CLARITIN [Concomitant]

REACTIONS (4)
  - EPISTAXIS [None]
  - HEADACHE [None]
  - NASAL DISCOMFORT [None]
  - SCAB [None]
